FAERS Safety Report 9641696 (Version 1)
Quarter: 2013Q4

REPORT INFORMATION
  Report Type: Spontaneous
  Country: CA (occurrence: CA)
  Receive Date: 20131023
  Receipt Date: 20131023
  Transmission Date: 20140711
  Serious: Yes (Hospitalization, Other)
  Sender: FDA-Public Use
  Company Number: CA-JHP PHARMACEUTICALS, LLC-JHP201300620

PATIENT
  Age: 60 Year
  Sex: Female

DRUGS (22)
  1. KETALAR [Suspect]
     Indication: SEDATIVE THERAPY
     Dosage: 20-40 MG EVERY 40 MINUTES PRN
     Route: 042
  2. MIDAZOLAM [Interacting]
     Indication: SEDATIVE THERAPY
     Dosage: 2 MG, HR
     Route: 042
  3. MIDAZOLAM [Interacting]
     Dosage: 4 MG, EVERY 3 MINUTES PRN
     Route: 042
  4. FENTANYL [Suspect]
     Indication: SEDATIVE THERAPY
     Dosage: 450 ?G, HR
     Route: 042
  5. FENTANYL [Suspect]
     Dosage: 50-100 MCG EVERY 5 MIN PRN
  6. HYDROMORPHONE [Suspect]
     Indication: ANALGESIC THERAPY
     Dosage: 8 MG, HR
     Route: 042
  7. HYDROMORPHONE [Suspect]
     Dosage: 3 MG EVERY 30 MINUTES PRN
     Route: 042
  8. SALBUTAMOL [Concomitant]
  9. FLUTICASONE [Concomitant]
     Dosage: ONCE DAILY
  10. RABEPRAZOLE [Concomitant]
     Dosage: 20 MG, DAILY
  11. FERROUS FUMERATE [Concomitant]
  12. PENICILLIN G [Concomitant]
  13. VASOPRESSIN [Concomitant]
  14. NOREPINEPHRINE [Concomitant]
  15. DOBUTAMINE [Concomitant]
  16. HEPARIN LMW [Concomitant]
     Indication: PROPHYLAXIS
  17. PEPTASE [Concomitant]
  18. RANITIDINE [Concomitant]
  19. ALBUMIN [Concomitant]
  20. METHADONE [Concomitant]
     Dosage: 40 MG, DAILY
  21. RAMIPRIL [Concomitant]
     Dosage: 10 MG, DAILY
  22. DOMPERIDONE [Concomitant]
     Dosage: 10 MG, BEFORE MEALS

REACTIONS (2)
  - Inhibitory drug interaction [Recovered/Resolved]
  - Drug ineffective [Recovered/Resolved]
